FAERS Safety Report 8540932-6 (Version None)
Quarter: 2012Q3

REPORT INFORMATION
  Report Type: 
  Country: None (occurrence: None)
  Receive Date: 20120726
  Receipt Date: 20110805
  Transmission Date: 20120928
  Serious: No
  Sender: FDA-Public Use
  Company Number: US-ASTRAZENECA-2011SE47396

PATIENT
  Age: 33 Year
  Sex: Female

DRUGS (4)
  1. SEROQUEL XR [Suspect]
     Indication: INSOMNIA
     Route: 048
  2. SEROQUEL XR [Suspect]
     Indication: DEPRESSION
     Route: 048
  3. SEROQUEL XR [Suspect]
     Indication: HALLUCINATION, AUDITORY
     Route: 048
  4. SEROQUEL XR [Suspect]
     Indication: BORDERLINE PERSONALITY DISORDER
     Route: 048

REACTIONS (5)
  - INITIAL INSOMNIA [None]
  - OFF LABEL USE [None]
  - FEELING ABNORMAL [None]
  - DRUG DOSE OMISSION [None]
  - INSOMNIA [None]
